FAERS Safety Report 15675165 (Version 1)
Quarter: 2018Q4

REPORT INFORMATION
  Report Type: Spontaneous
  Country: US (occurrence: US)
  Receive Date: 20181129
  Receipt Date: 20181129
  Transmission Date: 20190205
  Serious: Yes (Hospitalization)
  Sender: FDA-Public Use
  Company Number: None

PATIENT
  Age: 39 Year
  Sex: Male
  Weight: 153.9 kg

DRUGS (10)
  1. DICYCLOMINE [Concomitant]
     Active Substance: DICYCLOMINE HYDROCHLORIDE
  2. PREDNISONE 10 MG TABLET [Concomitant]
     Active Substance: PREDNISONE
  3. PRYIDOSTIGMINE BROMIDE EXTENDED-RELEASE TABLETS 180MG [Suspect]
     Active Substance: PYRIDOSTIGMINE BROMIDE
     Indication: MYASTHENIA GRAVIS
     Dosage: ?          QUANTITY:1 TABLET(S);?
     Route: 048
     Dates: start: 20181003, end: 20181023
  4. KROGER BRAND VITAMIN C 500MG [Concomitant]
  5. KROGER BRAND MENS MUTIVITAMON GUMMIES [Concomitant]
  6. KROGER BRAND SUPER B COMPLEX WITH C [Concomitant]
  7. TRAZODONE [Concomitant]
     Active Substance: TRAZODONE HYDROCHLORIDE
  8. FLUOXETINE [Concomitant]
     Active Substance: FLUOXETINE HYDROCHLORIDE
  9. PYRIDOSTIGMINE [Concomitant]
     Active Substance: PYRIDOSTIGMINE
  10. PYRIDOSTIGMINE 60 TABLET [Concomitant]

REACTIONS (4)
  - Myasthenia gravis [None]
  - Asthenia [None]
  - Product substitution [None]
  - Product residue present [None]

NARRATIVE: CASE EVENT DATE: 20181020
